FAERS Safety Report 24066510 (Version 2)
Quarter: 2024Q3

REPORT INFORMATION
  Report Type: Report from Study
  Country: CN (occurrence: CN)
  Receive Date: 20240709
  Receipt Date: 20240712
  Transmission Date: 20241017
  Serious: No
  Sender: NOVARTIS
  Company Number: CN-002147023-NVSC2024CN128049

PATIENT
  Age: 33 Year
  Sex: Female
  Weight: 55 kg

DRUGS (1)
  1. COSENTYX [Suspect]
     Active Substance: SECUKINUMAB
     Indication: Psoriasis
     Dosage: 300 MG, QMO (2 INJECTION S AT A TIME)
     Route: 058
     Dates: start: 2022, end: 202405

REACTIONS (8)
  - White blood cell count increased [Recovered/Resolved]
  - Inflammation [Recovering/Resolving]
  - Rash papular [Recovering/Resolving]
  - Cough [Recovering/Resolving]
  - Pyrexia [Recovering/Resolving]
  - Rhinorrhoea [Recovering/Resolving]
  - Respiratory disorder [Recovering/Resolving]
  - Drug ineffective [Recovering/Resolving]

NARRATIVE: CASE EVENT DATE: 20240520
